FAERS Safety Report 8217847-6 (Version None)
Quarter: 2012Q1

REPORT INFORMATION
  Report Type: 
  Country: None (occurrence: None)
  Receive Date: 20120319
  Receipt Date: 20101130
  Transmission Date: 20120608
  Serious: Yes (Other)
  Sender: FDA-Public Use
  Company Number: AU-JNJFOC-20101000678

PATIENT
  Sex: Female
  Weight: 74 kg

DRUGS (19)
  1. CALCIUM CARBONATE [Concomitant]
     Route: 048
     Dates: start: 19960101
  2. ATENOLOL [Concomitant]
     Route: 048
     Dates: start: 20020101
  3. PREDNISOLONE [Concomitant]
     Route: 048
     Dates: start: 20060401
  4. PANTOPRAZOLE [Concomitant]
     Route: 048
     Dates: start: 20020101
  5. METHOTREXATE [Suspect]
     Route: 048
     Dates: start: 20060615, end: 20070607
  6. RAMIPRIL [Concomitant]
     Route: 048
     Dates: start: 20020101
  7. METHOTREXATE [Concomitant]
     Route: 048
     Dates: start: 20080515
  8. MOBIC [Concomitant]
     Route: 048
     Dates: start: 20070907
  9. LIPITOR [Concomitant]
     Route: 048
     Dates: start: 20070907
  10. PLACEBO [Suspect]
     Indication: RHEUMATOID ARTHRITIS
     Route: 048
     Dates: start: 20060615, end: 20060928
  11. ASPIRIN [Concomitant]
     Route: 048
     Dates: start: 20020101
  12. GOLIMUMAB [Suspect]
     Indication: RHEUMATOID ARTHRITIS
     Route: 058
     Dates: start: 20100929
  13. GOLIMUMAB [Suspect]
     Route: 058
     Dates: start: 20060615
  14. GOLIMUMAB [Suspect]
     Route: 058
     Dates: start: 20100902
  15. METHOTREXATE [Suspect]
     Indication: RHEUMATOID ARTHRITIS
     Route: 048
     Dates: start: 20060525, end: 20060608
  16. FOLIC ACID [Concomitant]
     Route: 048
     Dates: start: 19910401
  17. STREPSILS [Concomitant]
     Route: 048
     Dates: start: 20070527
  18. ACYCLOVIR [Concomitant]
     Route: 048
     Dates: start: 20100801
  19. AMOXICILLIN [Concomitant]
     Route: 048
     Dates: start: 20100830

REACTIONS (1)
  - MALIGNANT MELANOMA [None]
